FAERS Safety Report 18118197 (Version 1)
Quarter: 2020Q3

REPORT INFORMATION
  Report Type: Spontaneous
  Country: RO (occurrence: RO)
  Receive Date: 20200806
  Receipt Date: 20200806
  Transmission Date: 20201103
  Serious: Yes (Other)
  Sender: FDA-Public Use
  Company Number: RO-AUROBINDO-AUR-APL-2020-037703

PATIENT
  Age: 64 Year
  Sex: Female

DRUGS (6)
  1. QUETIAPINE. [Suspect]
     Active Substance: QUETIAPINE
     Indication: SOMATIC SYMPTOM DISORDER
     Dosage: 50 MILLIGRAM, DAILY
     Route: 065
  2. DULOXETINE. [Suspect]
     Active Substance: DULOXETINE
     Indication: SOMATIC SYMPTOM DISORDER
     Dosage: 60 MILLIGRAM, DAILY
     Route: 065
  3. GABAPENTIN. [Suspect]
     Active Substance: GABAPENTIN
     Indication: SOMATIC SYMPTOM DISORDER
     Dosage: 400 MILLIGRAM, DAILY
     Route: 065
  4. MIRTAZAPINE. [Suspect]
     Active Substance: MIRTAZAPINE
     Indication: SOMATIC SYMPTOM DISORDER
     Dosage: 30 MILLIGRAM, DAILY
     Route: 065
  5. QUETIAPINE. [Suspect]
     Active Substance: QUETIAPINE
     Dosage: 300 MILLIGRAM, DAILY
     Route: 065
  6. LORAZEPAMUM [Suspect]
     Active Substance: LORAZEPAM
     Indication: SOMATIC SYMPTOM DISORDER
     Dosage: 1 MILLIGRAM, DAILY
     Route: 065

REACTIONS (1)
  - Drug ineffective [Unknown]
